FAERS Safety Report 17398644 (Version 2)
Quarter: 2020Q2

REPORT INFORMATION
  Report Type: Spontaneous
  Country: HR (occurrence: HR)
  Receive Date: 20200210
  Receipt Date: 20200406
  Transmission Date: 20200713
  Serious: Yes (Death, Life-Threatening, Hospitalization, Disabling, Other)
  Sender: FDA-Public Use
  Company Number: HR-BAYER-2020-021248

PATIENT
  Age: 40 Year
  Sex: Female

DRUGS (28)
  1. VINCRISTINE [Suspect]
     Active Substance: VINCRISTINE
     Indication: DIFFUSE LARGE B-CELL LYMPHOMA STAGE IV
     Dosage: UNK
  2. ENDOXAN [CYCLOPHOSPHAMIDE] [Suspect]
     Active Substance: CYCLOPHOSPHAMIDE
     Indication: DIFFUSE LARGE B-CELL LYMPHOMA STAGE IV
     Dosage: UNK
  3. ENDOXAN [CYCLOPHOSPHAMIDE] [Suspect]
     Active Substance: CYCLOPHOSPHAMIDE
     Indication: DIFFUSE LARGE B-CELL LYMPHOMA STAGE IV
     Dosage: UNK
  4. ETOPOSIDE. [Suspect]
     Active Substance: ETOPOSIDE
     Indication: DIFFUSE LARGE B-CELL LYMPHOMA STAGE IV
     Dosage: UNK
  5. ACICLOVIR [Concomitant]
     Active Substance: ACYCLOVIR
     Indication: ANTIBIOTIC PROPHYLAXIS
  6. CONTROLOC [Concomitant]
     Active Substance: PANTOPRAZOLE SODIUM
  7. ENDOXAN [CYCLOPHOSPHAMIDE] [Concomitant]
     Active Substance: CYCLOPHOSPHAMIDE
  8. METHYLPREDNISOLONE. [Suspect]
     Active Substance: METHYLPREDNISOLONE
     Indication: DIFFUSE LARGE B-CELL LYMPHOMA STAGE IV
     Dosage: UNK
  9. FUROSEMID [FUROSEMIDE] [Concomitant]
     Active Substance: FUROSEMIDE
  10. CIPROFLOXACIN MONOHYDROCHLORIDE [Suspect]
     Active Substance: CIPROFLOXACIN
     Indication: PROPHYLAXIS
     Dosage: UNK
  11. RITUXIMAB. [Suspect]
     Active Substance: RITUXIMAB
     Indication: DIFFUSE LARGE B-CELL LYMPHOMA STAGE IV
     Dosage: UNK
  12. AZACITIDINE. [Suspect]
     Active Substance: AZACITIDINE
     Indication: ACUTE MYELOID LEUKAEMIA
     Dosage: UNK
  13. DIFLUCAN [Concomitant]
     Active Substance: FLUCONAZOLE
     Indication: ANTIBIOTIC PROPHYLAXIS
  14. BELODERM [BETAMETHASONE] [Concomitant]
  15. CARVELOL [Concomitant]
     Active Substance: CARVEDILOL
  16. METHYL-DIGOXIN [Concomitant]
     Active Substance: METILDIGOXIN
  17. DOXORUBICIN [Suspect]
     Active Substance: DOXORUBICIN
     Indication: DIFFUSE LARGE B-CELL LYMPHOMA STAGE IV
     Dosage: UNK
  18. DOXORUBICIN [Suspect]
     Active Substance: DOXORUBICIN
     Indication: DIFFUSE LARGE B-CELL LYMPHOMA STAGE IV
     Dosage: UNK
  19. THIOGUANINE [Suspect]
     Active Substance: THIOGUANINE
     Indication: REFRACTORY ANAEMIA WITH AN EXCESS OF BLASTS
  20. DOLOKAIN [Concomitant]
  21. METHYLPREDNISOLONE. [Suspect]
     Active Substance: METHYLPREDNISOLONE
     Indication: DIFFUSE LARGE B-CELL LYMPHOMA STAGE IV
     Dosage: UNK
  22. VINBLASTINE [Suspect]
     Active Substance: VINBLASTINE
     Indication: DIFFUSE LARGE B-CELL LYMPHOMA STAGE IV
     Dosage: UNK
  23. RITUXIMAB. [Suspect]
     Active Substance: RITUXIMAB
     Indication: DIFFUSE LARGE B-CELL LYMPHOMA STAGE IV
     Dosage: UNK
  24. ETOPOSIDE. [Suspect]
     Active Substance: ETOPOSIDE
     Indication: DIFFUSE LARGE B-CELL LYMPHOMA STAGE IV
     Dosage: UNK
  25. CURASEPT [CHLORHEXIDINE GLUCONATE] [Concomitant]
  26. GELCLAIR [ENOXOLONE;HYALURONATE SODIUM;POVIDONE] [Concomitant]
  27. TRITACE [Concomitant]
     Active Substance: RAMIPRIL
  28. DIFFLAM [Concomitant]
     Active Substance: BENZYDAMINE HYDROCHLORIDE

REACTIONS (15)
  - Gingival ulceration [Not Recovered/Not Resolved]
  - Aspergillus infection [Fatal]
  - Toxicity to various agents [Unknown]
  - Myelodysplastic syndrome transformation [Unknown]
  - Stenotrophomonas infection [Unknown]
  - Neutropenia [Unknown]
  - Sinusitis aspergillus [Fatal]
  - Enterococcal infection [Unknown]
  - Pancytopenia [Unknown]
  - Refractory anaemia with an excess of blasts [Unknown]
  - Staphylococcal sepsis [Fatal]
  - Toxic neuropathy [Unknown]
  - Thrombocytopenia [Unknown]
  - Acute myeloid leukaemia [Unknown]
  - Congestive cardiomyopathy [Unknown]
